FAERS Safety Report 6740055-2 (Version None)
Quarter: 2010Q2

REPORT INFORMATION
  Report Type: 
  Country: None (occurrence: None)
  Receive Date: 20100521
  Receipt Date: 20100310
  Transmission Date: 20101027
  Serious: Yes (Hospitalization)
  Sender: FDA-Public Use
  Company Number: IT-2010-0525

PATIENT
  Age: 29 Year
  Sex: Male

DRUGS (2)
  1. NAVELBINE [Suspect]
     Indication: ANAPLASTIC LARGE CELL LYMPHOMA T- AND NULL-CELL TYPES
     Dosage: 25 MG/M2 UNK IV
     Route: 042
     Dates: start: 20100126, end: 20100129
  2. IFOSFAMIDE [Suspect]
     Indication: ANAPLASTIC LARGE CELL LYMPHOMA T- AND NULL-CELL TYPES
     Dosage: 2500 MG/M2 UNK IV
     Route: 042
     Dates: start: 20100126, end: 20100129

REACTIONS (1)
  - CYSTITIS HAEMORRHAGIC [None]
